FAERS Safety Report 20037428 (Version 2)
Quarter: 2021Q4

REPORT INFORMATION
  Report Type: Other
  Country: JP (occurrence: JP)
  Receive Date: 20211105
  Receipt Date: 20211112
  Transmission Date: 20220303
  Serious: Yes (Death, Hospitalization)
  Sender: FDA-Public Use
  Company Number: JP-CHUGAI-2021024712

PATIENT
  Age: 76 Year
  Sex: Male
  Weight: 50 kg

DRUGS (3)
  1. TECENTRIQ [Suspect]
     Active Substance: ATEZOLIZUMAB
     Indication: Small cell lung cancer
     Route: 041
     Dates: start: 201910, end: 201912
  2. CARBOPLATIN [Concomitant]
     Active Substance: CARBOPLATIN
     Indication: Small cell lung cancer
     Route: 041
     Dates: start: 201910, end: 201912
  3. ETOPOSIDE [Concomitant]
     Active Substance: ETOPOSIDE
     Indication: Small cell lung cancer
     Dosage: UNK
     Route: 065
     Dates: start: 201910, end: 201912

REACTIONS (2)
  - Demyelinating polyneuropathy [Recovering/Resolving]
  - Disease progression [Fatal]
